FAERS Safety Report 5273815-8 (Version None)
Quarter: 2007Q1

REPORT INFORMATION
  Report Type: 
  Country: None (occurrence: None)
  Receive Date: 20070323
  Receipt Date: 20070320
  Transmission Date: 20070707
  Serious: Yes (Hospitalization)
  Sender: FDA-Public Use
  Company Number: US-AMGEN-US208778

PATIENT
  Sex: Female

DRUGS (9)
  1. ENBREL [Suspect]
     Indication: RHEUMATOID ARTHRITIS
     Route: 058
     Dates: start: 20031001
  2. PAXIL [Concomitant]
     Route: 065
  3. XANAX [Concomitant]
     Route: 065
  4. ENTOCORT [Concomitant]
     Route: 065
  5. LIBRAX [Concomitant]
     Route: 065
  6. PENTASA [Concomitant]
     Route: 065
  7. NEXIUM [Concomitant]
     Route: 065
  8. BUMEX [Concomitant]
     Route: 065
  9. COZAAR [Concomitant]
     Route: 065

REACTIONS (6)
  - CROHN'S DISEASE [None]
  - DEHYDRATION [None]
  - GASTROENTERITIS [None]
  - INJECTION SITE DISCOMFORT [None]
  - JOINT SWELLING [None]
  - OEDEMA PERIPHERAL [None]
